FAERS Safety Report 7113780-1 (Version None)
Quarter: 2010Q4

REPORT INFORMATION
  Report Type: 
  Country: None (occurrence: None)
  Receive Date: 20101119
  Receipt Date: 20101109
  Transmission Date: 20110411
  Serious: Yes (Hospitalization)
  Sender: FDA-Public Use
  Company Number: US-ACTELION-A-US2010-38179

PATIENT

DRUGS (5)
  1. TRACLEER [Suspect]
     Dosage: 125 MG, BID
     Route: 048
     Dates: start: 20080701
  2. TREPROSTINIL [Concomitant]
  3. NAFCILLIN [Concomitant]
  4. VORICONAZOLE [Concomitant]
  5. AMPICILLIN [Concomitant]

REACTIONS (3)
  - BLOOD BILIRUBIN INCREASED [None]
  - CONDITION AGGRAVATED [None]
  - STAPHYLOCOCCAL SEPSIS [None]
